FAERS Safety Report 17095145 (Version 1)
Quarter: 2019Q4

REPORT INFORMATION
  Report Type: Spontaneous
  Country: GB (occurrence: GB)
  Receive Date: 20191130
  Receipt Date: 20191130
  Transmission Date: 20200122
  Serious: Yes (Hospitalization)
  Sender: FDA-Public Use
  Company Number: GB-TEVA-2019-GB-1143321

PATIENT
  Age: 72 Year
  Sex: Male

DRUGS (12)
  1. LANSOPRAZOLE. [Concomitant]
     Active Substance: LANSOPRAZOLE
     Dosage: 20 MG
     Route: 048
  2. NUTRITIONAL SUPPLEMENT [Concomitant]
     Active Substance: DIETARY SUPPLEMENT
     Dosage: 2 DF
     Route: 048
  3. CLOPIDOGREL [Concomitant]
     Active Substance: CLOPIDOGREL BISULFATE
     Route: 048
  4. FERROUS FUMARATE [Concomitant]
     Active Substance: FERROUS FUMARATE
     Dosage: 630 MG
  5. PRAVASTATIN. [Concomitant]
     Active Substance: PRAVASTATIN
     Dosage: EVERY NIGHT, 20 MG
     Route: 048
  6. LOSARTAN. [Concomitant]
     Active Substance: LOSARTAN
     Dosage: 100 MG
     Route: 048
  7. LOPERAMIDE [Concomitant]
     Active Substance: LOPERAMIDE
     Dosage: STAT THEN 2MG AS NECESSARY, 4 MG
     Route: 048
  8. ATENOLOL. [Concomitant]
     Active Substance: ATENOLOL
     Dosage: 50 MG
     Route: 048
  9. LOPERAMIDE [Concomitant]
     Active Substance: LOPERAMIDE
     Dosage: STAT THEN 2MG AS NECESSARY, 4 MG
     Route: 048
  10. CAPECITABINE. [Suspect]
     Active Substance: CAPECITABINE
     Indication: RECTAL ADENOCARCINOMA
     Dosage: 14 DAYS THEN 7-DAY BREAK, 4000 MG
     Route: 048
     Dates: start: 20190930, end: 20191016
  11. METOCLOPRAMIDE. [Concomitant]
     Active Substance: METOCLOPRAMIDE
     Dosage: THREE TIMES A DAY, 10 MG
  12. MACROGOL [Concomitant]
     Active Substance: POLYETHYLENE GLYCOLS
     Dosage: UP TO FOUR TIMES DAILY, 1 DF
     Route: 048

REACTIONS (4)
  - Product use issue [Unknown]
  - Erythema [Unknown]
  - Feeling hot [Unknown]
  - Palmar-plantar erythrodysaesthesia syndrome [Recovering/Resolving]

NARRATIVE: CASE EVENT DATE: 20191011
